FAERS Safety Report 4555435-3 (Version None)
Quarter: 2005Q1

REPORT INFORMATION
  Report Type: 
  Country: None (occurrence: None)
  Receive Date: 20050118
  Receipt Date: 20050118
  Transmission Date: 20050727
  Serious: Yes (Life-Threatening)
  Sender: FDA-Public Use
  Company Number: None

PATIENT
  Sex: Male
  Weight: 102.5129 kg

DRUGS (1)
  1. CRESTOR [Suspect]
     Indication: BLOOD CHOLESTEROL INCREASED
     Dosage: 20 MG 1/DAY ORAL
     Route: 048
     Dates: start: 20040107, end: 20041116

REACTIONS (6)
  - BACK PAIN [None]
  - DEPRESSION [None]
  - JOINT STIFFNESS [None]
  - LOSS OF EMPLOYMENT [None]
  - MUSCLE INJURY [None]
  - PAIN [None]
